FAERS Safety Report 24761069 (Version 1)
Quarter: 2024Q4

REPORT INFORMATION
  Report Type: Spontaneous
  Country: CA (occurrence: CA)
  Receive Date: 20241220
  Receipt Date: 20241220
  Transmission Date: 20250115
  Serious: Yes (Hospitalization)
  Sender: TEVA
  Company Number: CA-TEVA-VS-3275616

PATIENT
  Age: 85 Year
  Sex: Male

DRUGS (1)
  1. AMIODARONE [Suspect]
     Active Substance: AMIODARONE
     Dosage: DOSE FORM; NOT SPECIFIED
     Route: 048

REACTIONS (6)
  - Cardiac failure congestive [Recovering/Resolving]
  - Early satiety [Recovering/Resolving]
  - Nausea [Recovering/Resolving]
  - Decreased appetite [Recovering/Resolving]
  - Atrial fibrillation [Recovering/Resolving]
  - Weight decreased [Recovering/Resolving]
